FAERS Safety Report 17457023 (Version 5)
Quarter: 2022Q1

REPORT INFORMATION
  Report Type: Spontaneous
  Country: US (occurrence: US)
  Receive Date: 20200225
  Receipt Date: 20220131
  Transmission Date: 20220423
  Serious: No
  Sender: FDA-Public Use
  Company Number: US-SA-2020SA047795

PATIENT
  Age: 58 Year
  Sex: Male

DRUGS (1)
  1. DUPILUMAB [Suspect]
     Active Substance: DUPILUMAB
     Indication: Nasal polyps
     Dosage: 300 MG, QOW
     Route: 058
     Dates: start: 20200125

REACTIONS (10)
  - Injection site mass [Recovered/Resolved]
  - Limb discomfort [Not Recovered/Not Resolved]
  - Eyelid thickening [Not Recovered/Not Resolved]
  - Sinusitis [Unknown]
  - Dyspnoea [Unknown]
  - Anosmia [Unknown]
  - Injection site reaction [Unknown]
  - Drug ineffective [Unknown]
  - Off label use [Unknown]
  - Product storage error [Unknown]

NARRATIVE: CASE EVENT DATE: 20200101
